FAERS Safety Report 12966467 (Version 1)
Quarter: 2016Q4

REPORT INFORMATION
  Report Type: Other
  Country: GB (occurrence: IT)
  Receive Date: 20161122
  Receipt Date: 20161122
  Transmission Date: 20170207
  Serious: Yes (Other)
  Sender: FDA-Public Use
  Company Number: IT-INTERNATIONAL MEDICATION SYSTEMS, LIMITED-1059977

PATIENT
  Age: 60 Year
  Sex: Male

DRUGS (5)
  1. DRONEDARONE [Concomitant]
     Active Substance: DRONEDARONE
  2. ATROPINE. [Suspect]
     Active Substance: ATROPINE
  3. DIPYRIDAMOLE. [Suspect]
     Active Substance: DIPYRIDAMOLE
  4. AMINOPHYLLINE. [Suspect]
     Active Substance: AMINOPHYLLINE
  5. DIPYRIDAMOLE. [Suspect]
     Active Substance: DIPYRIDAMOLE

REACTIONS (1)
  - Myocardial bridging [Recovered/Resolved]
